FAERS Safety Report 8884805 (Version 3)
Quarter: 2013Q1

REPORT INFORMATION
  Report Type: Spontaneous
  Country: US (occurrence: US)
  Receive Date: 20121102
  Receipt Date: 20130107
  Transmission Date: 20140127
  Serious: Yes (Hospitalization)
  Sender: FDA-Public Use
  Company Number: US-BAYER-2012-114457

PATIENT
  Age: 31 Year
  Sex: Female
  Weight: 69.2 kg

DRUGS (20)
  1. YAZ [Suspect]
     Dosage: UNK
     Dates: start: 20061101, end: 200707
  2. MIRTAZAPINE [Concomitant]
     Indication: SLEEP DISORDER
     Dosage: 15 MG, UNK1 OR 2 TS (INTERPRETED AS TEASPOONS) Q (INTERPRETED AS EVERY) HS PRN
     Route: 048
  3. LIDOCAINE [Concomitant]
     Indication: RASH
     Dosage: 30 G, BID
  4. HYDROCODONE W/APAP [Concomitant]
     Dosage: 10MG/500 MG TABS
     Route: 048
  5. ALBUTEROL [Concomitant]
     Indication: ASTHMA
     Dosage: 0.083 %,1 VIAL PER NEBULIZER Q 4 TO 6 H PRN
     Route: 045
  6. TOPAMAX [Concomitant]
     Dosage: 50 MG, 1 T (INTERPRETED AS TABLESPOON) BID
     Route: 048
  7. D-AMPHETAMINE SALT COMBO [Concomitant]
     Dosage: 10 MG, TS QAM [AND] 1 T [AT] 2 PM
     Route: 048
  8. ALPRAZOLAM [Concomitant]
     Dosage: 1 MG, 1 T BID PRN
     Route: 048
  9. SULFAMETHOXAZOLE/TRIMETHOPRIM [Concomitant]
     Dosage: 800/160, 1T, BID
     Route: 048
  10. PHENAZOPYRIDINE [Concomitant]
     Dosage: 200 MG, TID
  11. CIPROFLOXACIN [Concomitant]
     Dosage: 500 MG, BID
     Route: 048
  12. AMOXICILLIN [Concomitant]
     Dosage: 500 MG, QID
     Route: 048
  13. DICLOFENAC SODIUM [Concomitant]
     Dosage: 75 MG, TID
     Route: 048
  14. CETIRIZINE [Concomitant]
     Dosage: 10 MG, 1 T QHS
     Route: 048
  15. ATROVENT [Concomitant]
  16. LORTAB [Concomitant]
  17. ROBITUSSIN [GUAIFENESIN] [Concomitant]
  18. XANAX [Concomitant]
     Dosage: 0.5 MG IN THE AFTERNOON AND 1 MG Q.H.S.
  19. SELECTIVE SEROTONIN REUPTAKE INHIBITORS [Concomitant]
  20. ADDERALL [Concomitant]

REACTIONS (8)
  - Pulmonary embolism [Recovering/Resolving]
  - Injury [Recovering/Resolving]
  - Pain [None]
  - General physical health deterioration [Recovering/Resolving]
  - Anxiety [None]
  - Anhedonia [None]
  - Emotional distress [None]
  - Pain [Recovering/Resolving]
